FAERS Safety Report 10548236 (Version 1)
Quarter: 2014Q4

REPORT INFORMATION
  Report Type: Spontaneous
  Country: US (occurrence: None)
  Receive Date: 20141024
  Receipt Date: 20141024
  Transmission Date: 20150529
  Serious: Yes (Other)
  Sender: FDA-Public Use
  Company Number: 2014IHE00462

PATIENT
  Sex: Female

DRUGS (3)
  1. AZO YEAST [Suspect]
     Active Substance: EUPATORIUM PERFOLIATUM FLOWERING TOP\VISCUM ALBUM LEAF
     Indication: FUNGAL INFECTION
  2. VITAMINS (UNSPECIFIED) [Suspect]
     Active Substance: VITAMINS
  3. ESTROVEN [Suspect]
     Active Substance: DIETARY SUPPLEMENT
     Indication: MENOPAUSAL SYMPTOMS

REACTIONS (1)
  - Seizure [None]
